FAERS Safety Report 6299816-9 (Version None)
Quarter: 2009Q3

REPORT INFORMATION
  Report Type: 
  Country: None (occurrence: None)
  Receive Date: 20090806
  Receipt Date: 20090729
  Transmission Date: 20100115
  Serious: Yes (Hospitalization)
  Sender: FDA-Public Use
  Company Number: BE-AVENTIS-200917828GDDC

PATIENT
  Age: 59 Year
  Sex: Male

DRUGS (3)
  1. ARAVA [Suspect]
     Indication: ANXIETY
     Route: 048
     Dates: start: 20090703, end: 20090705
  2. ARAVA [Suspect]
     Route: 048
     Dates: start: 20090706, end: 20090706
  3. PAROXETINE [Suspect]
     Dosage: DOSE: UNK

REACTIONS (5)
  - ANXIETY [None]
  - FEAR [None]
  - NAUSEA [None]
  - SOMNOLENCE [None]
  - TREMOR [None]
